FAERS Safety Report 24547748 (Version 1)
Quarter: 2024Q4

REPORT INFORMATION
  Report Type: Spontaneous
  Country: DE (occurrence: DE)
  Receive Date: 20241025
  Receipt Date: 20241025
  Transmission Date: 20250115
  Serious: Yes (Other)
  Sender: ESPERION THERAPEUTICS
  Company Number: DE-DAIICHI SANKYO EUROPE GMBH-DS-2024-104046-DE

PATIENT
  Sex: Male

DRUGS (5)
  1. BEMPEDOIC ACID\EZETIMIBE [Suspect]
     Active Substance: BEMPEDOIC ACID\EZETIMIBE
     Indication: Coronary artery disease
     Dosage: UNK UNK, QD
     Route: 048
     Dates: start: 20240711, end: 20240822
  2. BEMPEDOIC ACID\EZETIMIBE [Suspect]
     Active Substance: BEMPEDOIC ACID\EZETIMIBE
     Indication: Blood cholesterol increased
  3. MARCUMAR [Concomitant]
     Active Substance: PHENPROCOUMON
     Indication: Cardiac ventricular thrombosis
     Dosage: UNK
     Route: 065
  4. ROSUVASTATIN [Concomitant]
     Active Substance: ROSUVASTATIN
     Indication: Coronary artery disease
     Dosage: UNK
     Route: 065
     Dates: start: 20240711
  5. ROSUVASTATIN [Concomitant]
     Active Substance: ROSUVASTATIN
     Indication: Blood cholesterol increased

REACTIONS (2)
  - Gastrointestinal haemorrhage [Recovered/Resolved]
  - International normalised ratio increased [Recovered/Resolved]

NARRATIVE: CASE EVENT DATE: 20240729
